FAERS Safety Report 6946938 (Version 2)
Quarter: 2014Q1

REPORT INFORMATION
  Report Type: Spontaneous
  Country: DE (occurrence: DE)
  Receive Date: 20090320
  Receipt Date: 20140306
  Transmission Date: 20141002
  Serious: Yes (Other)
  Sender: FDA-Public Use
  Company Number: DE-ROCHE-621554

PATIENT
  Sex: Female

DRUGS (1)
  1. ROCEPHIN [Suspect]
     Indication: BORRELIA INFECTION
     Dosage: 5 INFUSIONS IN SEP/2006
     Route: 042
     Dates: start: 200609, end: 200609

REACTIONS (3)
  - Pain [Not Recovered/Not Resolved]
  - Hemiparesis [Not Recovered/Not Resolved]
  - Paralysis [Not Recovered/Not Resolved]
